FAERS Safety Report 19960482 (Version 1)
Quarter: 2021Q4

REPORT INFORMATION
  Report Type: Spontaneous
  Country: US (occurrence: US)
  Receive Date: 20211015
  Receipt Date: 20211015
  Transmission Date: 20220303
  Serious: Yes (Other)
  Sender: FDA-Public Use
  Company Number: US-FRESENIUS MEDICAL CARE RENAL THERAPIES GROUP-FMC-2109-001436

PATIENT
  Age: 56 Year
  Sex: Female
  Weight: 84 kg

DRUGS (15)
  1. DELFLEX [Suspect]
     Active Substance: CALCIUM CHLORIDE\DEXTROSE\MAGNESIUM CHLORIDE\SODIUM CHLORIDE\SODIUM LACTATE
     Indication: End stage renal disease
     Route: 033
     Dates: start: 20210624
  2. ACYCLOVIR [Concomitant]
     Active Substance: ACYCLOVIR
  3. LEVEMIR [Concomitant]
     Active Substance: INSULIN DETEMIR
  4. ALDACTONE [Concomitant]
     Active Substance: SPIRONOLACTONE
  5. BUMEX [Concomitant]
     Active Substance: BUMETANIDE
  6. CALCITRIOL [Concomitant]
     Active Substance: CALCITRIOL
  7. CLONIDINE [Concomitant]
     Active Substance: CLONIDINE
  8. DILTIAZEM [Concomitant]
     Active Substance: DILTIAZEM
  9. ASPIRIN [Concomitant]
     Active Substance: ASPIRIN
  10. GABAPENTIN [Concomitant]
     Active Substance: GABAPENTIN
  11. GENTAMICIN [Concomitant]
     Active Substance: GENTAMICIN
  12. HYDRALAZINE [Concomitant]
     Active Substance: HYDRALAZINE HYDROCHLORIDE
  13. METHOCARBAMOL [Concomitant]
     Active Substance: METHOCARBAMOL
  14. PANTOPRAZOLE [Concomitant]
     Active Substance: PANTOPRAZOLE
  15. ZOFRAN [Concomitant]
     Active Substance: ONDANSETRON HYDROCHLORIDE

REACTIONS (1)
  - Peritonitis bacterial [Recovering/Resolving]

NARRATIVE: CASE EVENT DATE: 20210910
